FAERS Safety Report 18549333 (Version 6)
Quarter: 2021Q1

REPORT INFORMATION
  Report Type: Spontaneous
  Country: US (occurrence: US)
  Receive Date: 20201126
  Receipt Date: 20210129
  Transmission Date: 20210419
  Serious: Yes (Death, Other)
  Sender: FDA-Public Use
  Company Number: US-PFIZER INC-2020143244

PATIENT
  Age: 40 Year
  Sex: Female

DRUGS (2)
  1. GENOTROPIN [Suspect]
     Active Substance: SOMATROPIN
     Indication: PRADER-WILLI SYNDROME
     Dosage: 1.6 MG, DAILY (SEVEN DAYS A WEEK)
     Dates: start: 2006
  2. GENOTROPIN [Suspect]
     Active Substance: SOMATROPIN
     Indication: SHORT STATURE

REACTIONS (5)
  - Drug dose omission by device [Unknown]
  - Device information output issue [Unknown]
  - Death [Fatal]
  - Device leakage [Unknown]
  - Pulmonary embolism [Unknown]

NARRATIVE: CASE EVENT DATE: 20200914
